FAERS Safety Report 22399238 (Version 1)
Quarter: 2023Q2

REPORT INFORMATION
  Report Type: Spontaneous
  Country: DE (occurrence: DE)
  Receive Date: 20230602
  Receipt Date: 20230602
  Transmission Date: 20230721
  Serious: Yes (Other)
  Sender: FDA-Public Use
  Company Number: DE-CELLTRION INC.-2023DE010345

PATIENT

DRUGS (10)
  1. RITUXIMAB [Suspect]
     Active Substance: RITUXIMAB
     Indication: Mucous membrane pemphigoid
     Route: 065
  2. DEXAMETHASONE [Concomitant]
     Active Substance: DEXAMETHASONE
     Indication: Mucous membrane pemphigoid
     Dosage: 3 X 100 MG EACH AT INITIATION OF RTX
  3. DEXAMETHASONE [Concomitant]
     Active Substance: DEXAMETHASONE
     Dosage: 2X100 MG (EACH SYSTEMIC TREATMENTS UP TO 6 MONTHS AFTER RTX)
  4. DEXAMETHASONE [Concomitant]
     Active Substance: DEXAMETHASONE
     Dosage: 3 X 100 MG EACH MONTH 7-12 AFTER RTX
  5. MYCOPHENOLATE MOFETIL [Concomitant]
     Active Substance: MYCOPHENOLATE MOFETIL
     Indication: Mucous membrane pemphigoid
     Dosage: 2000 MILLIGRAM, EVERY DAY (AT INITIATION OF RTX)
  6. MYCOPHENOLATE MOFETIL [Concomitant]
     Active Substance: MYCOPHENOLATE MOFETIL
     Dosage: 2000 MILLIGRAM, EVERY DAY (SYSTEMIC TREATMENTS UP TO 6 MONTHS AFTER RTX)
  7. MYCOPHENOLATE MOFETIL [Concomitant]
     Active Substance: MYCOPHENOLATE MOFETIL
     Dosage: 2000 MILLIGRAM, EVERY DAY MONTH (7-12 AFTER RTX)
  8. HUMAN IMMUNOGLOBULIN G [Concomitant]
     Active Substance: HUMAN IMMUNOGLOBULIN G
     Indication: Mucous membrane pemphigoid
     Dosage: (AT INITIATION OF RTX)
  9. HUMAN IMMUNOGLOBULIN G [Concomitant]
     Active Substance: HUMAN IMMUNOGLOBULIN G
     Dosage: SYSTEMIC TREATMENTS UP TO 6 MONTHS AFTER RTX
  10. HUMAN IMMUNOGLOBULIN G [Concomitant]
     Active Substance: HUMAN IMMUNOGLOBULIN G
     Dosage: MONTH 7-12 AFTER RTX

REACTIONS (3)
  - Mucous membrane pemphigoid [Unknown]
  - Urinary tract infection [Unknown]
  - Off label use [Unknown]
